FAERS Safety Report 8955356 (Version 1)
Quarter: 2012Q4

REPORT INFORMATION
  Report Type: Spontaneous
  Country: GB (occurrence: None)
  Receive Date: 20121130
  Receipt Date: 20121130
  Transmission Date: 20130627
  Serious: Yes (Hospitalization, Other)
  Sender: FDA-Public Use
  Company Number: 2012DEPGB00459

PATIENT
  Age: 62 Year
  Sex: Male

DRUGS (4)
  1. DEPOCYT [Suspect]
     Indication: ACUTE LEUKAEMIA
     Dates: start: 20111202
  2. FLUDARA [Suspect]
     Indication: ACUTE LEUKAEMIA
     Dates: start: 20111202
  3. G-CSF [Suspect]
     Indication: ACUTE LEUKAEMIA
     Dates: start: 20111202
  4. IDAMYCIN [Suspect]
     Indication: ACUTE LEUKAEMIA
     Dates: start: 20111202

REACTIONS (2)
  - Neutropenic sepsis [None]
  - Fungal infection [None]
